FAERS Safety Report 24131392 (Version 1)
Quarter: 2024Q3

REPORT INFORMATION
  Report Type: Report from Study
  Country: MX (occurrence: MX)
  Receive Date: 20240724
  Receipt Date: 20240724
  Transmission Date: 20241016
  Serious: Yes (Hospitalization, Other)
  Sender: BIOVITRUM
  Company Number: MX-AstraZeneca-2024A166060

PATIENT
  Age: 75 Day
  Sex: Male
  Weight: 4.6 kg

DRUGS (9)
  1. SYNAGIS [Suspect]
     Active Substance: PALIVIZUMAB
     Indication: Antiviral prophylaxis
     Dosage: 30 MG, MONTHLY
     Route: 030
     Dates: start: 20240506, end: 20240506
  2. SYNAGIS [Suspect]
     Active Substance: PALIVIZUMAB
     Dosage: 0.51 ML, MONTHLY
     Route: 030
     Dates: start: 20240531, end: 20240531
  3. SYNAGIS [Suspect]
     Active Substance: PALIVIZUMAB
     Dosage: 70 MG, MONTHLY
     Route: 030
     Dates: start: 20240705, end: 20240705
  4. LACTOBACILLUS REUTERI [Concomitant]
     Active Substance: LACTOBACILLUS REUTERI
     Indication: Product used for unknown indication
     Dosage: ONCE A DAY
  5. ESOMEPRAZOLE [Concomitant]
     Active Substance: ESOMEPRAZOLE
     Indication: Respiratory disorder prophylaxis
     Dosage: 2.5 MG DILUTED IN 3 ML, DAILY
     Route: 048
     Dates: start: 20240607
  6. DIMETHICONE\GUAIAZULENE [Concomitant]
     Active Substance: DIMETHICONE\GUAIAZULENE
     Indication: Product used for unknown indication
  7. TRIBISOL [Concomitant]
     Indication: Product used for unknown indication
  8. FLUTICASONE [Concomitant]
     Active Substance: FLUTICASONE
     Indication: Product used for unknown indication
  9. FOLIC ACID [Concomitant]
     Active Substance: FOLIC ACID
     Indication: Product used for unknown indication

REACTIONS (2)
  - Respiratory distress [Recovered/Resolved]
  - Vomiting [Unknown]

NARRATIVE: CASE EVENT DATE: 20240607
